FAERS Safety Report 6149257-X (Version None)
Quarter: 2009Q2

REPORT INFORMATION
  Report Type: 
  Country: None (occurrence: None)
  Receive Date: 20090409
  Receipt Date: 20090402
  Transmission Date: 20091009
  Serious: Yes (Hospitalization, Disabling, Other)
  Sender: FDA-Public Use
  Company Number: IT-AMGEN-US319295

PATIENT
  Sex: Female

DRUGS (7)
  1. ENBREL [Suspect]
     Indication: RHEUMATOID ARTHRITIS
     Route: 058
     Dates: start: 20060101, end: 20061201
  2. HUMULIN R [Concomitant]
     Route: 065
  3. SODIUM BICARBONATE [Concomitant]
     Route: 065
  4. EUTIROX [Concomitant]
     Route: 065
  5. HUMALOG [Concomitant]
     Route: 065
  6. ANTRA [Concomitant]
     Route: 065
  7. SIMVASTATIN [Concomitant]
     Route: 065

REACTIONS (4)
  - FISTULA [None]
  - HYDRONEPHROSIS [None]
  - TUBERCULOSIS [None]
  - URINARY TRACT INFECTION [None]
